FAERS Safety Report 4745780-0 (Version None)
Quarter: 2005Q3

REPORT INFORMATION
  Report Type: 
  Country: None (occurrence: None)
  Receive Date: 20050816
  Receipt Date: 20041223
  Transmission Date: 20060218
  Serious: No
  Sender: FDA-Public Use
  Company Number: US-BRISTOL-MYERS SQUIBB COMPANY-12807780

PATIENT
  Age: 52 Year
  Sex: Female
  Weight: 77 kg

DRUGS (4)
  1. LAC-HYDRIN [Suspect]
     Indication: DRY SKIN
     Route: 061
  2. ZYRTEC [Concomitant]
  3. PROTONIX [Concomitant]
  4. ZANTAC [Concomitant]

REACTIONS (2)
  - PAIN [None]
  - RASH ERYTHEMATOUS [None]
